FAERS Safety Report 21970436 (Version 1)
Quarter: 2023Q1

REPORT INFORMATION
  Report Type: Spontaneous
  Country: US (occurrence: US)
  Receive Date: 20230209
  Receipt Date: 20230209
  Transmission Date: 20230418
  Serious: No
  Sender: FDA-Public Use
  Company Number: US-AMGEN-USASP2022228659

PATIENT
  Sex: Female

DRUGS (5)
  1. OTEZLA [Suspect]
     Active Substance: APREMILAST
     Indication: Psoriasis
     Dosage: 30 MILLIGRAM, BID
     Route: 048
     Dates: start: 20220722
  2. COSENTYX [Concomitant]
     Active Substance: SECUKINUMAB
  3. CYCLOSPORINE [Concomitant]
     Active Substance: CYCLOSPORINE
  4. FLUOCINONIDE [Concomitant]
     Active Substance: FLUOCINONIDE
  5. METRONIDAZOLE [Concomitant]
     Active Substance: METRONIDAZOLE

REACTIONS (5)
  - Psoriasis [Unknown]
  - Diarrhoea [Unknown]
  - Joint stiffness [Unknown]
  - Fatigue [Unknown]
  - Product dose omission issue [Unknown]
